FAERS Safety Report 7429716-X (Version None)
Quarter: 2011Q2

REPORT INFORMATION
  Report Type: 
  Country: None (occurrence: None)
  Receive Date: 20110421
  Receipt Date: 20110412
  Transmission Date: 20111010
  Serious: Yes (Other)
  Sender: FDA-Public Use
  Company Number: US-JNJFOC-20101205361

PATIENT
  Sex: Female
  Weight: 57.61 kg

DRUGS (20)
  1. FENTANYL-100 [Suspect]
     Route: 062
  2. FENTANYL-100 [Suspect]
     Indication: NEURALGIA
     Route: 062
  3. BENADRYL [Concomitant]
     Dosage: 2 CAP 2-3 TIMES A DAY
     Route: 065
  4. RELPAX [Concomitant]
     Indication: MIGRAINE
     Dosage: 1 TABLET WITH ONSET THEN AFTER 2 HRS TAKE ANOTHER, NOT TO EXCEED 2 TABLETS IN 24 HRS PRN
     Route: 065
  5. DURAGESIC [Suspect]
     Route: 062
  6. BACLOFEN [Concomitant]
     Indication: MUSCLE SPASMS
     Route: 048
  7. BENADRYL [Concomitant]
     Indication: SEASONAL ALLERGY
     Route: 048
  8. NEXIUM [Concomitant]
     Route: 048
  9. DURAGESIC [Suspect]
     Dosage: NDC#50458-036-05
     Route: 062
  10. EFFEXOR XR [Concomitant]
     Route: 048
  11. SINGULAIR [Concomitant]
     Indication: SEASONAL ALLERGY
     Dosage: 1 EVERY MORNING
     Route: 048
  12. LODINE XL [Concomitant]
     Indication: ANTIINFLAMMATORY THERAPY
     Route: 048
  13. VALIUM [Concomitant]
     Indication: MUSCLE SPASMS
     Route: 048
  14. ZANAFLEX [Concomitant]
     Indication: MUSCLE SPASMS
     Dosage: 1 TABLET 3 TIMES A DAY/
     Route: 048
  15. DURAGESIC [Suspect]
     Route: 062
  16. LYRICA [Concomitant]
     Indication: NEURALGIA
     Route: 048
  17. RESTORIL [Concomitant]
     Indication: SLEEP DISORDER
     Route: 048
  18. KLONOPIN [Concomitant]
     Dosage: 1MG/ TWICE A DAY PRN
     Route: 048
  19. PERCOCET [Concomitant]
     Dosage: 20-650MG/TABLET/10-325MG/ 2 TABLETS 4 TIMES DAY
     Route: 048
  20. DURAGESIC [Suspect]
     Indication: NEURALGIA
     Route: 062

REACTIONS (7)
  - DRUG INEFFECTIVE [None]
  - HYPERHIDROSIS [None]
  - GASTROOESOPHAGEAL REFLUX DISEASE [None]
  - INTERVERTEBRAL DISC DEGENERATION [None]
  - WRONG TECHNIQUE IN DRUG USAGE PROCESS [None]
  - PRODUCT ADHESION ISSUE [None]
  - PAIN [None]
